FAERS Safety Report 6838833-4 (Version None)
Quarter: 2010Q3

REPORT INFORMATION
  Report Type: 
  Country: None (occurrence: None)
  Receive Date: 20100713
  Receipt Date: 20070725
  Transmission Date: 20110219
  Serious: No
  Sender: FDA-Public Use
  Company Number: US-PFIZER INC-2007044399

PATIENT
  Sex: Female
  Weight: 68 kg

DRUGS (9)
  1. CHANTIX [Suspect]
     Indication: SMOKING CESSATION THERAPY
     Route: 048
     Dates: start: 20070518
  2. TRIAMTERENE [Concomitant]
  3. VERAPAMIL [Concomitant]
  4. BENICAR [Concomitant]
  5. FENTANYL [Concomitant]
  6. MORPHINE SULFATE [Concomitant]
  7. LAMICTAL [Concomitant]
  8. CYMBALTA [Concomitant]
  9. AMBIEN [Concomitant]

REACTIONS (2)
  - DRUG INTOLERANCE [None]
  - NAUSEA [None]
